FAERS Safety Report 6470709 (Version 20)
Quarter: 2013Q3

REPORT INFORMATION
  Report Type: Spontaneous
  Country: US (occurrence: US)
  Receive Date: 20071119
  Receipt Date: 20130802
  Transmission Date: 20140515
  Serious: Yes (Hospitalization, Other)
  Sender: FDA-Public Use
  Company Number: PHEH2007US14844

PATIENT
  Age: 52 Year
  Sex: Female
  Weight: 64.4 kg

DRUGS (35)
  1. AREDIA [Suspect]
     Indication: HYPERCALCAEMIA
     Dosage: 90 MG, QMO
     Route: 042
     Dates: start: 20000523, end: 200204
  2. ZOMETA [Suspect]
     Dosage: 4 MG, QMO
     Route: 042
  3. ZOMETA [Suspect]
     Dates: end: 201104
  4. DEXAMETHASONE [Concomitant]
     Dosage: 40 MG, QD
     Dates: start: 200007
  5. REVLIMID [Concomitant]
     Dosage: 25 MG, QD
  6. VELCADE [Concomitant]
  7. EVISTA [Concomitant]
     Indication: OSTEOPOROSIS
  8. PROCRIT                            /00909301/ [Concomitant]
     Dosage: 40000 U, QW
     Route: 058
     Dates: start: 200209
  9. FOSAMAX [Concomitant]
     Indication: OSTEOPOROSIS
  10. IMIPRAMINE [Concomitant]
     Dosage: 25 MG
  11. PREMPRO [Concomitant]
  12. ARANESP [Concomitant]
  13. THALOMID [Concomitant]
  14. COUMADIN ^BOOTS^ [Concomitant]
     Dosage: 1 MG, QD
  15. KYTRIL [Concomitant]
     Dosage: 1 MG
  16. FERROUS SULFATE [Concomitant]
     Indication: ANAEMIA
     Dosage: 325 MG
     Dates: start: 20000505
  17. NPH INSULIN [Concomitant]
  18. LOPRESSOR [Concomitant]
  19. MAG-OX [Concomitant]
  20. PREVACID [Concomitant]
  21. PERCOCET [Concomitant]
  22. BLOOD TRANSFUSION, AUXILIARY PRODUCTS [Concomitant]
  23. LEVAQUIN [Concomitant]
  24. DETROL [Concomitant]
  25. METHYLMETHACRYLATE [Concomitant]
  26. MAGNEVIST [Concomitant]
  27. DECADRON                                /CAN/ [Concomitant]
  28. ACYCLOVIR [Concomitant]
     Indication: ANTIVIRAL PROPHYLAXIS
  29. KLONOPIN [Concomitant]
     Dosage: 1 DF, QHS
     Route: 048
  30. NAPROSYN [Concomitant]
     Dosage: 500 MG, Q12H
     Route: 048
  31. PRILOSEC [Concomitant]
     Dosage: 40 MG, QD
  32. DOLOPHINE [Concomitant]
     Dosage: 10 MG, BID
  33. LASIX [Concomitant]
     Route: 042
     Dates: start: 20081008
  34. LOPERAMIDE [Concomitant]
     Dosage: 2 MG
  35. CLONAZEPAM [Concomitant]
     Dosage: 0.5 MG

REACTIONS (106)
  - Diabetic ketoacidosis [Unknown]
  - Cholelithiasis [Unknown]
  - Urinary tract infection [Unknown]
  - Osteonecrosis of jaw [Unknown]
  - Pain [Unknown]
  - Infection [Unknown]
  - Periodontitis [Unknown]
  - Gingival disorder [Unknown]
  - Deformity [Unknown]
  - Diabetes mellitus [Unknown]
  - Depression [Unknown]
  - Uterovaginal prolapse [Unknown]
  - Cystocele [Unknown]
  - Pelvic prolapse [Unknown]
  - Stomatitis [Unknown]
  - Gingival erythema [Unknown]
  - Oropharyngeal pain [Unknown]
  - Neck pain [Unknown]
  - Pain in jaw [Unknown]
  - Arthralgia [Unknown]
  - Pelvic discomfort [Unknown]
  - Bone pain [Unknown]
  - Osteoporosis [Recovered/Resolved with Sequelae]
  - Stress urinary incontinence [Unknown]
  - Urinary incontinence [Unknown]
  - Pollakiuria [Unknown]
  - Nocturia [Unknown]
  - Micturition urgency [Unknown]
  - Urinary hesitation [Unknown]
  - Musculoskeletal chest pain [Unknown]
  - Alopecia areata [Unknown]
  - Chills [Unknown]
  - Pyrexia [Unknown]
  - Diarrhoea [Unknown]
  - Asthenia [Unknown]
  - Vision blurred [Unknown]
  - Neuropathy peripheral [Unknown]
  - Rash [Unknown]
  - Inflammation [Unknown]
  - Dyspepsia [Unknown]
  - Pulmonary congestion [Unknown]
  - Weight decreased [Unknown]
  - Hepatomegaly [Unknown]
  - Somnolence [Unknown]
  - Hot flush [Unknown]
  - Rash macular [Unknown]
  - Rhinorrhoea [Unknown]
  - Epistaxis [Unknown]
  - Cough [Unknown]
  - Dyspnoea exertional [Unknown]
  - Paroxysmal arrhythmia [Unknown]
  - Wheezing [Unknown]
  - Chest discomfort [Unknown]
  - Spinal compression fracture [Unknown]
  - Sinus tachycardia [Unknown]
  - Thrombocytopenia [Unknown]
  - Leukopenia [Unknown]
  - Kyphosis [Unknown]
  - Femoral neck fracture [Unknown]
  - Hypokalaemia [Unknown]
  - Swelling [Unknown]
  - Gastritis [Unknown]
  - Gastritis haemorrhagic [Unknown]
  - Hepatic steatosis [Unknown]
  - Renal cyst [Unknown]
  - Pancreatic duct dilatation [Unknown]
  - Insomnia [Unknown]
  - Nephropathy [Unknown]
  - Embolism [Unknown]
  - Emphysema [Unknown]
  - Constipation [Unknown]
  - Inspiratory capacity decreased [Unknown]
  - Pancytopenia [Unknown]
  - Pneumonia [Unknown]
  - Obesity [Unknown]
  - Cardiac failure congestive [Unknown]
  - Arthritis [Unknown]
  - Spinal osteoarthritis [Unknown]
  - Dysphagia [Unknown]
  - Cellulitis [Unknown]
  - Abscess limb [Unknown]
  - Dermatitis [Unknown]
  - General physical health deterioration [Unknown]
  - Abdominal pain [Unknown]
  - Rib fracture [Unknown]
  - Atelectasis [Unknown]
  - Bronchitis [Unknown]
  - Ecchymosis [Unknown]
  - Oedema [Unknown]
  - Fracture displacement [Unknown]
  - Pneumothorax [Unknown]
  - Periorbital contusion [Unknown]
  - Atrophic vulvovaginitis [Unknown]
  - Malaise [Unknown]
  - Hyperlipidaemia [Unknown]
  - Duodenitis [Unknown]
  - Fall [Unknown]
  - Tricuspid valve incompetence [Unknown]
  - Pulmonary valve incompetence [Unknown]
  - Hypoglycaemia [Unknown]
  - Tooth loss [Unknown]
  - Gingival bleeding [Unknown]
  - Loose tooth [Unknown]
  - Haemorrhage [Unknown]
  - Rotator cuff syndrome [Unknown]
  - Bone lesion [Recovering/Resolving]
